FAERS Safety Report 11804735 (Version 1)
Quarter: 2015Q4

REPORT INFORMATION
  Report Type: Spontaneous
  Country: US (occurrence: None)
  Receive Date: 20151203
  Receipt Date: 20151203
  Transmission Date: 20160305
  Serious: Yes (Hospitalization)
  Sender: FDA-Public Use
  Company Number: None

PATIENT
  Sex: Male
  Weight: 874 kg

DRUGS (1)
  1. SUNITINIB MALATE (SU011248 L-MALATE) [Suspect]
     Active Substance: SUNITINIB MALATE
     Dates: end: 20151124

REACTIONS (3)
  - Blood pressure increased [None]
  - Lacunar infarction [None]
  - Carotid artery stenosis [None]

NARRATIVE: CASE EVENT DATE: 20151122
